FAERS Safety Report 18260515 (Version 1)
Quarter: 2020Q3

REPORT INFORMATION
  Report Type: Report from Study
  Country: IT (occurrence: IT)
  Receive Date: 20200914
  Receipt Date: 20200914
  Transmission Date: 20201103
  Serious: Yes (Hospitalization)
  Sender: FDA-Public Use
  Company Number: IT-TEVA-2020-IT-1825948

PATIENT
  Age: 38 Year
  Sex: Male

DRUGS (4)
  1. VALPROIC ACID. [Suspect]
     Active Substance: VALPROIC ACID
     Dosage: 10 DF
     Route: 065
     Dates: start: 20200101, end: 20200713
  2. SERENASE (HALOPERIDOL) [Suspect]
     Active Substance: HALOPERIDOL
     Route: 048
     Dates: start: 20200713, end: 20200713
  3. VALPROIC ACID. [Suspect]
     Active Substance: VALPROIC ACID
     Dosage: 34 DF
     Route: 065
     Dates: start: 20200713, end: 20200713
  4. CLOZAPINE. [Suspect]
     Active Substance: CLOZAPINE
     Dates: start: 20200713, end: 20200713

REACTIONS (1)
  - Sopor [Not Recovered/Not Resolved]

NARRATIVE: CASE EVENT DATE: 20200713
